FAERS Safety Report 7440909-8 (Version None)
Quarter: 2011Q2

REPORT INFORMATION
  Report Type: 
  Country: None (occurrence: None)
  Receive Date: 20110427
  Receipt Date: 20110406
  Transmission Date: 20111010
  Serious: Yes (Other)
  Sender: FDA-Public Use
  Company Number: DE-ACTELION-A-US2011-46237

PATIENT

DRUGS (1)
  1. VENTAVIS [Suspect]
     Indication: PULMONARY ARTERIAL HYPERTENSION
     Dosage: 2.5 UG, UNK
     Route: 055
     Dates: start: 20100128, end: 20110112

REACTIONS (5)
  - NASOPHARYNGITIS [None]
  - FEELING ABNORMAL [None]
  - HIP ARTHROPLASTY [None]
  - ASTHENIA [None]
  - PNEUMONIA [None]
